FAERS Safety Report 7377847-5 (Version None)
Quarter: 2011Q1

REPORT INFORMATION
  Report Type: 
  Country: None (occurrence: None)
  Receive Date: 20110328
  Receipt Date: 20110318
  Transmission Date: 20110831
  Serious: Yes (Hospitalization)
  Sender: FDA-Public Use
  Company Number: FR-ROCHE-767170

PATIENT
  Sex: Female
  Weight: 73 kg

DRUGS (7)
  1. ZANTAC [Concomitant]
     Indication: PREMEDICATION
  2. CYCLOPHOSPHAMIDE [Concomitant]
  3. TAXOTERE [Suspect]
     Indication: BREAST CANCER
     Dosage: FREQUENCY: ONE INTAKE, FORM: INFUSION
     Route: 042
     Dates: start: 20110128
  4. HERCEPTIN [Suspect]
     Indication: BREAST CANCER
     Dosage: FREQUENCY: ONE INTAKE
     Route: 042
     Dates: start: 20110127
  5. METHYLPREDNISOLONE [Concomitant]
     Indication: PREMEDICATION
     Dosage: REPORTED AS SOLUMEDROL
  6. POLARAMINE [Concomitant]
     Indication: PREMEDICATION
  7. ZOPHREN [Concomitant]

REACTIONS (3)
  - SKIN LESION [None]
  - THERMAL BURN [None]
  - TOXIC SKIN ERUPTION [None]
